FAERS Safety Report 11913147 (Version 4)
Quarter: 2017Q3

REPORT INFORMATION
  Report Type: Report from Study
  Country: PL (occurrence: PL)
  Receive Date: 20160113
  Receipt Date: 20170823
  Transmission Date: 20171127
  Serious: Yes (Hospitalization)
  Sender: FDA-Public Use
  Company Number: PL-ROCHE-1689102

PATIENT
  Age: 49 Year
  Sex: Female
  Weight: 71 kg

DRUGS (22)
  1. NOLIPREL [Concomitant]
     Indication: HYPERTENSION
     Route: 065
     Dates: start: 20150301, end: 20160113
  2. KALIPOZ PROLONGATUM [Concomitant]
     Indication: HYPOKALAEMIA
     Route: 065
     Dates: start: 20141231
  3. TAMOXIFEN [Concomitant]
     Active Substance: TAMOXIFEN
     Indication: ADJUVANT THERAPY
     Route: 065
     Dates: start: 20150311
  4. METOPROLOL TARTRATE. [Concomitant]
     Active Substance: METOPROLOL TARTRATE
     Dosage: FOR HEMORRHAGIC MUCOSITIS OF UPPER RESPIRATORY TRACT
     Route: 042
  5. DOXORUBICIN [Suspect]
     Active Substance: DOXORUBICIN
     Indication: HER-2 POSITIVE BREAST CANCER
     Dosage: DAY 1 OF EACH 3 WEEK CYCLE
     Route: 042
     Dates: start: 20140916
  6. CYCLOPHOSPHAMIDE. [Suspect]
     Active Substance: CYCLOPHOSPHAMIDE
     Indication: HER-2 POSITIVE BREAST CANCER
     Dosage: 500 - 600 MG/M2?DAY 1 OF EACH 3 WEEK CYCLE
     Route: 042
     Dates: start: 20140916
  7. ONDANSETRON [Concomitant]
     Active Substance: ONDANSETRON
     Indication: VOMITING
     Route: 065
     Dates: start: 20141231
  8. ANESTELOC [Concomitant]
     Active Substance: PANTOPRAZOLE SODIUM
     Indication: PROPHYLAXIS
     Route: 065
     Dates: start: 20150320, end: 20151217
  9. METOPROLOL TARTRATE. [Concomitant]
     Active Substance: METOPROLOL TARTRATE
     Indication: RESPIRATORY TRACT HAEMORRHAGE
     Dosage: FOR DIFFUSE REPOLARISATION CHANGES
     Route: 065
     Dates: start: 20150519
  10. BIOFAZOLIN [Concomitant]
     Indication: ENDOMETRIAL HYPERTROPHY
     Route: 065
     Dates: start: 201701, end: 201701
  11. MIDAZOLAM [Concomitant]
     Active Substance: MIDAZOLAM HYDROCHLORIDE
     Indication: ENDOMETRIAL HYPERTROPHY
     Route: 065
     Dates: start: 201701, end: 201701
  12. PYRALGIN (POLAND) [Concomitant]
     Indication: ENDOMETRIAL HYPERTROPHY
     Route: 065
     Dates: start: 201701, end: 201701
  13. SORBIFER DURULES [Concomitant]
     Active Substance: FERROUS SULFATE
     Indication: ENDOMETRIAL HYPERTROPHY
     Route: 065
     Dates: start: 201701, end: 201702
  14. KETONAL (POLAND) [Concomitant]
     Indication: ENDOMETRIAL HYPERTROPHY
     Route: 065
     Dates: start: 201701, end: 201701
  15. NOLIPREL [Concomitant]
     Indication: RESPIRATORY TRACT HAEMORRHAGE
     Dosage: USED AS TREATMENT FOR HEMORRHAGIC MUCOSITIS OF UPPER RESPIRATORY TRACT
     Route: 042
  16. TARDYFERON (POLAND) [Concomitant]
     Indication: ANAEMIA
     Route: 065
     Dates: start: 20151014, end: 20160113
  17. PERTUZUMAB. [Suspect]
     Active Substance: PERTUZUMAB
     Indication: HER-2 POSITIVE BREAST CANCER
     Dosage: LOADING DOSE
     Route: 042
     Dates: start: 20141209
  18. PERTUZUMAB. [Suspect]
     Active Substance: PERTUZUMAB
     Dosage: MAINTENENCE DOSE, DATE OF MOST RECENT DOSE PRIOR TO SAE: 14/DEC/2015
     Route: 042
  19. TRAMAL [Concomitant]
     Active Substance: TRAMADOL
     Indication: ENDOMETRIAL HYPERTROPHY
     Route: 065
     Dates: start: 201701, end: 201701
  20. KALDYUM [Concomitant]
     Active Substance: POTASSIUM CHLORIDE
     Indication: ENDOMETRIAL HYPERTROPHY
     Route: 065
     Dates: start: 201701, end: 201702
  21. TRASTUZUMAB EMTANSINE [Suspect]
     Active Substance: ADO-TRASTUZUMAB EMTANSINE
     Indication: HER-2 POSITIVE BREAST CANCER
     Dosage: DOSE 255.6 MG, DATE OF MOST RECENT DOSE PRIOR TO SAE: 14/DEC/2015
     Route: 042
     Dates: start: 20141209
  22. FRAGMIN [Concomitant]
     Active Substance: DALTEPARIN SODIUM
     Indication: ENDOMETRIAL HYPERTROPHY
     Route: 065
     Dates: start: 201701, end: 201701

REACTIONS (1)
  - Respiratory tract haemorrhage [Recovered/Resolved]

NARRATIVE: CASE EVENT DATE: 20151218
